FAERS Safety Report 10527079 (Version 1)
Quarter: 2014Q4

REPORT INFORMATION
  Report Type: Spontaneous
  Country: US (occurrence: None)
  Receive Date: 20141016
  Receipt Date: 20141016
  Transmission Date: 20150528
  Serious: Yes (Hospitalization)
  Sender: FDA-Public Use
  Company Number: QSC-2014-0724

PATIENT
  Age: 37 Year
  Sex: Male

DRUGS (2)
  1. H.P. ACTHAR [Suspect]
     Active Substance: CORTICOTROPIN
     Indication: PROTEINURIA
     Dosage: 80 UNITS
     Route: 058
     Dates: start: 20131116
  2. RITUXAN [Suspect]
     Active Substance: RITUXIMAB
     Dates: start: 20140909

REACTIONS (2)
  - Alopecia [None]
  - Anaemia [None]

NARRATIVE: CASE EVENT DATE: 2014
